FAERS Safety Report 12931278 (Version 1)
Quarter: 2016Q4

REPORT INFORMATION
  Report Type: Spontaneous
  Country: US (occurrence: US)
  Receive Date: 20161110
  Receipt Date: 20161110
  Transmission Date: 20170207
  Serious: No
  Sender: FDA-Public Use
  Company Number: US-JAZZ-2016-US-018035

PATIENT
  Sex: Female

DRUGS (27)
  1. XYREM [Suspect]
     Active Substance: SODIUM OXYBATE
     Dosage: DOSE ADJUSTMENTS
     Route: 048
     Dates: start: 201507, end: 201511
  2. LUNESTA [Concomitant]
     Active Substance: ESZOPICLONE
  3. CHLORZOXAZONE. [Concomitant]
     Active Substance: CHLORZOXAZONE
  4. VENTOLIN HFA [Concomitant]
     Active Substance: ALBUTEROL SULFATE
  5. AMBIEN [Concomitant]
     Active Substance: ZOLPIDEM TARTRATE
  6. KLONOPIN [Concomitant]
     Active Substance: CLONAZEPAM
  7. LYRICA [Concomitant]
     Active Substance: PREGABALIN
  8. TRAMADOL. [Concomitant]
     Active Substance: TRAMADOL
  9. DICYCLOMINE [Concomitant]
     Active Substance: DICYCLOMINE HYDROCHLORIDE
  10. LORZONE [Concomitant]
     Active Substance: CHLORZOXAZONE
  11. BENADRYL ALLERGY [Concomitant]
     Active Substance: DIPHENHYDRAMINE HYDROCHLORIDE
  12. EXCEDRIN MIGRAINE [Concomitant]
     Active Substance: ACETAMINOPHEN\ASPIRIN\CAFFEINE
  13. FLUTICASONE PROPIONATE. [Concomitant]
     Active Substance: FLUTICASONE PROPIONATE
  14. VYVANSE [Concomitant]
     Active Substance: LISDEXAMFETAMINE DIMESYLATE
  15. ZOLOFT [Concomitant]
     Active Substance: SERTRALINE HYDROCHLORIDE
  16. ZANTAC [Concomitant]
     Active Substance: RANITIDINE HYDROCHLORIDE
  17. PROBIOTIC [Concomitant]
     Active Substance: PROBIOTICS NOS
  18. AMOXICILLIN. [Concomitant]
     Active Substance: AMOXICILLIN
  19. DIFLUCAN [Concomitant]
     Active Substance: FLUCONAZOLE
  20. XYREM [Suspect]
     Active Substance: SODIUM OXYBATE
     Indication: NARCOLEPSY
     Dosage: 2.25 G, BID
     Route: 048
     Dates: start: 201507, end: 201507
  21. XYREM [Suspect]
     Active Substance: SODIUM OXYBATE
     Dosage: 4 G, BID
     Route: 048
     Dates: start: 201511
  22. CLONAZEPAM. [Concomitant]
     Active Substance: CLONAZEPAM
  23. IBUPROFEN. [Concomitant]
     Active Substance: IBUPROFEN
  24. KEPPRA [Concomitant]
     Active Substance: LEVETIRACETAM
  25. SKELAXINE [Concomitant]
     Active Substance: ACETAMINOPHEN\CHLORZOXAZONE
  26. PROVIGIL [Concomitant]
     Active Substance: MODAFINIL
  27. RANITIDINE. [Concomitant]
     Active Substance: RANITIDINE

REACTIONS (2)
  - Therapeutic response unexpected [Unknown]
  - Pre-existing condition improved [Unknown]
